FAERS Safety Report 4428415-6 (Version None)
Quarter: 2004Q3

REPORT INFORMATION
  Report Type: 
  Country: None (occurrence: None)
  Receive Date: 20040816
  Receipt Date: 20040802
  Transmission Date: 20050211
  Serious: Yes (Death)
  Sender: FDA-Public Use
  Company Number: 2004052402

PATIENT
  Sex: Male

DRUGS (1)
  1. LISTERINE (EUCALYPTOL, MENTHOL, METHYL SALICYLATE, THYMOL) [Suspect]
     Dosage: BID, ORAL TOPICAL
     Route: 048

REACTIONS (1)
  - TONGUE NEOPLASM MALIGNANT STAGE UNSPECIFIED [None]
